FAERS Safety Report 5289701-3 (Version None)
Quarter: 2007Q2

REPORT INFORMATION
  Report Type: 
  Country: None (occurrence: None)
  Receive Date: 20070406
  Receipt Date: 20070403
  Transmission Date: 20071010
  Serious: Yes (Other)
  Sender: FDA-Public Use
  Company Number: DE-ALLERGAN-0703311US

PATIENT

DRUGS (1)
  1. BOTOX [Suspect]
     Indication: CEREBRAL PALSY
     Route: 030

REACTIONS (1)
  - EPILEPSY [None]
